FAERS Safety Report 11325463 (Version 3)
Quarter: 2018Q1

REPORT INFORMATION
  Report Type: Spontaneous
  Country: BR (occurrence: BR)
  Receive Date: 20150730
  Receipt Date: 20180321
  Transmission Date: 20180508
  Serious: No
  Sender: FDA-Public Use
  Company Number: BR-AMGEN-BRASP2015075880

PATIENT
  Age: 35 Year
  Sex: Female
  Weight: 79 kg

DRUGS (1)
  1. ENBREL [Suspect]
     Active Substance: ETANERCEPT
     Indication: RHEUMATOID ARTHRITIS
     Dosage: 50 MG, QWK
     Route: 065
     Dates: start: 2017

REACTIONS (2)
  - Product physical consistency issue [Not Recovered/Not Resolved]
  - Injection site pain [Not Recovered/Not Resolved]

NARRATIVE: CASE EVENT DATE: 2017
